FAERS Safety Report 5442564-5 (Version None)
Quarter: 2007Q3

REPORT INFORMATION
  Report Type: 
  Country: None (occurrence: None)
  Receive Date: 20070904
  Receipt Date: 20070831
  Transmission Date: 20080115
  Serious: Yes (Hospitalization)
  Sender: FDA-Public Use
  Company Number: US-BRISTOL-MYERS SQUIBB COMPANY-13890892

PATIENT
  Age: 20 Year
  Sex: Male

DRUGS (3)
  1. ATAZANAVIR CAPS [Suspect]
     Indication: HIV INFECTION
     Route: 048
  2. RITONAVIR [Suspect]
     Indication: HIV INFECTION
     Route: 048
  3. ABACAVIR + LAMIVUDINE [Suspect]
     Indication: HIV INFECTION
     Dosage: 600/300MG.
     Route: 048

REACTIONS (7)
  - DIARRHOEA [None]
  - HEADACHE [None]
  - HYPERBILIRUBINAEMIA [None]
  - HYPOAESTHESIA FACIAL [None]
  - NAUSEA [None]
  - VISION BLURRED [None]
  - VOMITING [None]
